FAERS Safety Report 8211152-X (Version None)
Quarter: 2012Q1

REPORT INFORMATION
  Report Type: 
  Country: None (occurrence: None)
  Receive Date: 20120315
  Receipt Date: 20120308
  Transmission Date: 20120608
  Serious: Yes (Hospitalization)
  Sender: FDA-Public Use
  Company Number: BR-SANOFI-AVENTIS-2012SA016007

PATIENT
  Sex: Female
  Weight: 52 kg

DRUGS (2)
  1. LANTUS [Suspect]
     Indication: TYPE 2 DIABETES MELLITUS
     Dosage: 10 IU IN THE MORNING AND 4 IU AT NIGHT3ML CARTRIDGE
     Route: 058
  2. AUTOPEN 24 [Suspect]
     Indication: DEVICE THERAPY

REACTIONS (6)
  - PYREXIA [None]
  - LOOSE TOOTH [None]
  - INFECTION [None]
  - DEVICE RELATED INFECTION [None]
  - FALL [None]
  - DRUG ADMINISTRATION ERROR [None]
